FAERS Safety Report 24748990 (Version 2)
Quarter: 2024Q4

REPORT INFORMATION
  Report Type: Spontaneous
  Country: US (occurrence: US)
  Receive Date: 20241218
  Receipt Date: 20241231
  Transmission Date: 20250114
  Serious: Yes (Other)
  Sender: TEVA
  Company Number: US-TEVA-VS-3275047

PATIENT
  Age: 68 Year
  Sex: Female

DRUGS (2)
  1. HYDROXYUREA [Suspect]
     Active Substance: HYDROXYUREA
     Indication: Essential thrombocythaemia
     Route: 048
  2. IRON SUCROSE [Concomitant]
     Active Substance: IRON SUCROSE
     Indication: Iron deficiency
     Dosage: TOTAL DOSE OF 400 MG
     Route: 042

REACTIONS (1)
  - Rebound effect [Unknown]
